FAERS Safety Report 7149411-4 (Version None)
Quarter: 2010Q4

REPORT INFORMATION
  Report Type: 
  Country: None (occurrence: None)
  Receive Date: 20101209
  Receipt Date: 20101208
  Transmission Date: 20110411
  Serious: Yes (Hospitalization)
  Sender: FDA-Public Use
  Company Number: KR-ABBOTT-10P-090-0689085-00

PATIENT
  Age: 35 Year
  Sex: Female
  Weight: 66 kg

DRUGS (13)
  1. KALETRA [Suspect]
     Indication: HIV INFECTION
     Route: 048
     Dates: start: 20100917
  2. KALETRA [Suspect]
     Route: 048
     Dates: start: 20100907, end: 20100916
  3. KALETRA [Suspect]
     Route: 048
     Dates: start: 20100407, end: 20100906
  4. ABACAVIR [Concomitant]
     Indication: ANTIRETROVIRAL THERAPY
     Dosage: 600MG DAILY
     Dates: start: 20100513
  5. LAMIVUDINE (EPIVIR HBV) [Concomitant]
     Indication: ANTIRETROVIRAL THERAPY
     Dosage: 300MG DAILY
     Dates: start: 20100513
  6. COMBIVIR [Concomitant]
     Indication: ANTIRETROVIRAL THERAPY
     Dosage: 2 TABS DAILY
     Dates: start: 20100407, end: 20100512
  7. CEFMINOX [Concomitant]
     Indication: CAESAREAN SECTION
     Route: 042
     Dates: start: 20100913, end: 20100916
  8. METHERGINE [Concomitant]
     Indication: UTERINE CONTRACTIONS ABNORMAL
     Route: 048
     Dates: start: 20100917, end: 20100921
  9. METHERGINE [Concomitant]
     Route: 048
     Dates: start: 20100915, end: 20100916
  10. ACACLOFENAC [Concomitant]
     Indication: UTERINE CONTRACTIONS ABNORMAL
     Route: 048
     Dates: start: 20100916, end: 20100921
  11. MAGNESIUM HYDROXIDE [Concomitant]
     Indication: LAXATIVE SUPPORTIVE CARE
     Route: 048
     Dates: start: 20100917, end: 20100921
  12. RANITIDINE [Concomitant]
     Indication: ANTACID THERAPY
     Route: 048
     Dates: start: 20100916, end: 20100921
  13. OXYTOCIN 5IU [Concomitant]
     Indication: UTERINE CONTRACTIONS ABNORMAL
     Route: 042
     Dates: start: 20100914, end: 20100915

REACTIONS (3)
  - ANAEMIA [None]
  - VAGINAL HAEMORRHAGE [None]
  - VOMITING [None]
